FAERS Safety Report 10273465 (Version 1)
Quarter: 2014Q1

REPORT INFORMATION
  Report Type: Spontaneous
  Country: US (occurrence: None)
  Receive Date: 20140306
  Receipt Date: 20140306
  Transmission Date: 20141002
  Serious: Yes (Hospitalization)
  Sender: FDA-Public Use
  Company Number: 163-21880-13082306

PATIENT
  Age: 70 Year
  Sex: Female
  Weight: 62.64 kg

DRUGS (6)
  1. REVLIMID [Suspect]
     Indication: PLASMA CELL MYELOMA
     Route: 048
     Dates: start: 20120430
  2. PAIN MEDICATION (ALL OTHER THERAPEUTIC PRODUCTS) [Concomitant]
  3. MEGESTROL [Concomitant]
  4. BABY ASA [Concomitant]
  5. DEXAMETHASONE (DEXAMETHASONE) [Concomitant]
  6. COREG (CARVEDILOL) [Concomitant]

REACTIONS (3)
  - Pulmonary embolism [None]
  - Deep vein thrombosis [None]
  - Dyspnoea [None]
